FAERS Safety Report 9299983 (Version 3)
Quarter: 2013Q4

REPORT INFORMATION
  Report Type: Spontaneous
  Country: US (occurrence: None)
  Receive Date: 20121227
  Receipt Date: 20131226
  Transmission Date: 20140711
  Serious: Yes (Other)
  Sender: FDA-Public Use
  Company Number: PHEH2012US022943

PATIENT
  Sex: Female

DRUGS (2)
  1. AFINITOR [Suspect]
     Indication: BREAST CANCER
     Route: 048
  2. ARIMIDEX (ANASTROZOLE) [Suspect]
     Indication: BREAST CANCER

REACTIONS (4)
  - Breast cancer [None]
  - Nervous system disorder [None]
  - Diarrhoea [None]
  - Drug ineffective [None]
